FAERS Safety Report 10019893 (Version 1)
Quarter: 2014Q1

REPORT INFORMATION
  Report Type: Spontaneous
  Country: US (occurrence: US)
  Receive Date: 20140318
  Receipt Date: 20140318
  Transmission Date: 20141002
  Serious: No
  Sender: FDA-Public Use
  Company Number: US-GALDERMA-US14000350

PATIENT
  Sex: Male

DRUGS (1)
  1. MIRVASO (BRIMONIDINE) TOPICAL GEL, 0.33% [Suspect]
     Indication: ERYTHEMA
     Dosage: 0.33%
     Route: 061

REACTIONS (5)
  - Condition aggravated [Unknown]
  - Rash [Unknown]
  - Emotional distress [Unknown]
  - Erythema [Unknown]
  - Off label use [Unknown]
